FAERS Safety Report 6050477-3 (Version None)
Quarter: 2009Q1

REPORT INFORMATION
  Report Type: 
  Country: None (occurrence: None)
  Receive Date: 20090126
  Receipt Date: 20090115
  Transmission Date: 20090719
  Serious: Yes (Hospitalization)
  Sender: FDA-Public Use
  Company Number: PHEH2009US00907

PATIENT
  Age: 70 Year
  Sex: Female

DRUGS (1)
  1. RECLAST [Suspect]
     Indication: OSTEOPOROSIS POSTMENOPAUSAL
     Dosage: 5 MG, UNK
     Route: 042

REACTIONS (5)
  - HYPOCALCAEMIA [None]
  - PAIN [None]
  - PNEUMONIA [None]
  - PYREXIA [None]
  - SMALL INTESTINAL OBSTRUCTION [None]
